FAERS Safety Report 7556414-4 (Version None)
Quarter: 2011Q2

REPORT INFORMATION
  Report Type: 
  Country: None (occurrence: None)
  Receive Date: 20110620
  Receipt Date: 20110610
  Transmission Date: 20111010
  Serious: Yes (Other)
  Sender: FDA-Public Use
  Company Number: FR-JNJFOC-20110606678

PATIENT
  Age: 25 Year
  Sex: Female

DRUGS (2)
  1. NEO-MERCAZOLE TAB [Concomitant]
     Indication: HYPERTHYROIDISM
     Route: 065
  2. ORTHO EVRA [Suspect]
     Indication: CONTRACEPTION
     Dosage: INITIATED 2-3 YEARS BEFORE
     Route: 062
     Dates: end: 20110601

REACTIONS (2)
  - HYPERTHYROIDISM [None]
  - SYSTEMIC LUPUS ERYTHEMATOSUS [None]
